FAERS Safety Report 4822698-6 (Version None)
Quarter: 2005Q4

REPORT INFORMATION
  Report Type: 
  Country: None (occurrence: None)
  Receive Date: 20051104
  Receipt Date: 20051021
  Transmission Date: 20060501
  Serious: Yes (Hospitalization)
  Sender: FDA-Public Use
  Company Number: 2005EU002413

PATIENT
  Age: 56 Year
  Sex: Female

DRUGS (7)
  1. FK506                   (TACROLIMUS CAPSULES) [Suspect]
     Indication: LIVER TRANSPLANT
     Dosage: 3.00 MG UID/QD ORAL
     Route: 048
     Dates: start: 20041229, end: 20050126
  2. MYCOPHENOLATE MOFETIL (MYCOPHENOLATE MOFETIL) [Suspect]
     Indication: LIVER TRANSPLANT
     Dosage: 1000.00 MG BID IV NOS
     Route: 042
     Dates: start: 20041228, end: 20041231
  3. METHYLPREDNISOLONE [Suspect]
     Indication: LIVER TRANSPLANT
     Dosage: 250.00 MG UID/QD
     Dates: start: 20041229
  4. PREDNISONE [Suspect]
     Indication: LIVER TRANSPLANT
     Dosage: 20.00 MG UID/QD
     Dates: start: 20050101, end: 20050119
  5. TAZOCILLIN (PIPERACILLIN SODIUM, TAZOBACTAM SODIUM) [Concomitant]
  6. ACETAMINOPHEN [Concomitant]
  7. INSULIN [Concomitant]

REACTIONS (3)
  - DRUG TOXICITY [None]
  - HEPATORENAL SYNDROME [None]
  - TRANSPLANT REJECTION [None]
